FAERS Safety Report 8084076-9 (Version None)
Quarter: 2012Q1

REPORT INFORMATION
  Report Type: 
  Country: None (occurrence: None)
  Receive Date: 20120128
  Receipt Date: 20110207
  Transmission Date: 20120608
  Serious: No
  Sender: FDA-Public Use
  Company Number: US-ABBOTT-11P-163-0703219-00

PATIENT
  Age: 68 Year
  Sex: Female

DRUGS (13)
  1. ALBUTEROL [Concomitant]
     Indication: ASTHMA
  2. FLOVENT [Concomitant]
     Dosage: 2-4 PUFFS
  3. FLOVENT [Concomitant]
     Indication: PRODUCT USED FOR UNKNOWN INDICATION
     Dosage: 1-2 PUFFS
  4. NASONEX [Concomitant]
     Indication: PRODUCT USED FOR UNKNOWN INDICATION
  5. LORAZEPAM [Concomitant]
     Indication: STRESS
     Dosage: AS REQUIRED
  6. PREDNISONE TAB [Concomitant]
     Indication: PRODUCT USED FOR UNKNOWN INDICATION
  7. ALBUTEROL [Concomitant]
     Indication: COUGH
  8. ALBUTEROL [Concomitant]
     Indication: ASTHMA
  9. DIOVAN [Concomitant]
     Indication: HYPERTENSION
  10. HUMIRA [Suspect]
     Indication: RHEUMATOID ARTHRITIS
     Dates: start: 20110127
  11. SALINE [Concomitant]
     Indication: PRODUCT USED FOR UNKNOWN INDICATION
     Route: 045
  12. PANTOPRAZOLE [Concomitant]
     Indication: PRODUCT USED FOR UNKNOWN INDICATION
  13. CLOTRIMAZOLE [Concomitant]
     Indication: PRODUCT USED FOR UNKNOWN INDICATION
     Dosage: UNDER TONGUE

REACTIONS (4)
  - PYREXIA [None]
  - COUGH [None]
  - CHILLS [None]
  - FATIGUE [None]
